FAERS Safety Report 7019839-1 (Version None)
Quarter: 2010Q3

REPORT INFORMATION
  Report Type: 
  Country: None (occurrence: None)
  Receive Date: 20100929
  Receipt Date: 20100922
  Transmission Date: 20110219
  Serious: Yes (Death, Hospitalization, Other)
  Sender: FDA-Public Use
  Company Number: US-BRISTOL-MYERS SQUIBB COMPANY-15299480

PATIENT
  Age: 62 Year
  Sex: Male

DRUGS (13)
  1. COUMADIN [Suspect]
     Indication: ANTICOAGULANT THERAPY
     Dosage: 5MG EVERY DAY PO: 24MAY07-27MAY07 2MG EVERY DAY IV: 02JUN07-16JUN07
     Route: 048
     Dates: start: 20070524, end: 20070616
  2. HEPARIN SODIUM [Suspect]
     Indication: CORONARY ARTERY BYPASS
     Dosage: 1 DF =10000U,5000U- 07MAY07; 5000U:23MAY07 2500U IV: 07MAY07;5000U IV ON 23MAY07
     Route: 040
     Dates: start: 20070507, end: 20070523
  3. HEPARIN SODIUM [Suspect]
     Indication: THROMBOEMBOLECTOMY
     Dosage: 1 DF =10000U,5000U- 07MAY07; 5000U:23MAY07 2500U IV: 07MAY07;5000U IV ON 23MAY07
     Route: 040
     Dates: start: 20070507, end: 20070523
  4. HEPARIN SODIUM [Suspect]
     Indication: PULMONARY EMBOLISM
     Dosage: 1 DF =10000U,5000U- 07MAY07; 5000U:23MAY07 2500U IV: 07MAY07;5000U IV ON 23MAY07
     Route: 040
     Dates: start: 20070507, end: 20070523
  5. HEPARIN SODIUM [Suspect]
     Indication: THROMBOLYSIS
     Dosage: 1 DF =10000U,5000U- 07MAY07; 5000U:23MAY07 2500U IV: 07MAY07;5000U IV ON 23MAY07
     Route: 040
     Dates: start: 20070507, end: 20070523
  6. HEPARIN SODIUM 25,000 UNITS IN DEXTROSE 5% [Suspect]
     Indication: PULMONARY EMBOLISM
     Dosage: HEPARIN SODIUM IN DEXTROSE 5% INJ 1DF=1400 UNITS
     Route: 041
     Dates: start: 20070523, end: 20070525
  7. HEPARIN SODIUM IN 0.9% SODIUM CHLORIDE [Concomitant]
     Dosage: 1 DF= 2U/ML
     Route: 041
     Dates: start: 20070507, end: 20070510
  8. LIPITOR [Concomitant]
  9. ASPIRIN [Concomitant]
  10. METOPROLOL TARTRATE [Concomitant]
  11. LISINOPRIL [Concomitant]
  12. DIGOXIN [Concomitant]
  13. PERCOCET [Concomitant]

REACTIONS (13)
  - ARTERIAL THROMBOSIS [None]
  - CARDIAC FAILURE CONGESTIVE [None]
  - CHOLECYSTITIS ACUTE [None]
  - CLOSTRIDIUM DIFFICILE COLITIS [None]
  - CORONARY ARTERY DISEASE [None]
  - HAEMORRHAGE [None]
  - ISCHAEMIC HEPATITIS [None]
  - MASTOIDITIS [None]
  - RENAL FAILURE ACUTE [None]
  - RESPIRATORY FAILURE [None]
  - SEPSIS [None]
  - SMALL INTESTINAL OBSTRUCTION [None]
  - TRANSVERSE SINUS THROMBOSIS [None]
